FAERS Safety Report 24012791 (Version 1)
Quarter: 2024Q2

REPORT INFORMATION
  Report Type: Spontaneous
  Country: US (occurrence: None)
  Receive Date: 20240626
  Receipt Date: 20240626
  Transmission Date: 20240715
  Serious: Yes (Other)
  Sender: FDA-Public Use
  Company Number: 2024A141460

PATIENT

DRUGS (1)
  1. LYNPARZA [Suspect]
     Active Substance: OLAPARIB
     Route: 048

REACTIONS (1)
  - Wound [Unknown]
